FAERS Safety Report 12214205 (Version 1)
Quarter: 2016Q1

REPORT INFORMATION
  Report Type: Spontaneous
  Country: US (occurrence: US)
  Receive Date: 20160328
  Receipt Date: 20160328
  Transmission Date: 20160526
  Serious: Yes (Hospitalization)
  Sender: FDA-Public Use
  Company Number: US-PFIZER INC-2016171730

PATIENT
  Age: 68 Year
  Sex: Male
  Weight: 103 kg

DRUGS (1)
  1. VFEND [Suspect]
     Active Substance: VORICONAZOLE
     Dosage: 500 MG, 2X/DAY
     Route: 048
     Dates: start: 2015

REACTIONS (3)
  - Cardiac disorder [Unknown]
  - Haematopoietic neoplasm [Unknown]
  - Condition aggravated [Unknown]
